FAERS Safety Report 5499932-5 (Version None)
Quarter: 2007Q4

REPORT INFORMATION
  Report Type: 
  Country: None (occurrence: None)
  Receive Date: 20071026
  Receipt Date: 20071017
  Transmission Date: 20080405
  Serious: Yes (Other)
  Sender: FDA-Public Use
  Company Number: US-PFIZER INC-2007087919

PATIENT
  Sex: Male
  Weight: 63.5 kg

DRUGS (1)
  1. DETROL LA [Suspect]
     Indication: INCONTINENCE

REACTIONS (4)
  - CALCULUS URINARY [None]
  - DRUG INEFFECTIVE [None]
  - INFECTION [None]
  - URINARY INCONTINENCE [None]
